FAERS Safety Report 6081741-X (Version None)
Quarter: 2009Q1

REPORT INFORMATION
  Report Type: 
  Country: None (occurrence: None)
  Receive Date: 20090128
  Receipt Date: 20080421
  Transmission Date: 20090719
  Serious: Yes (Hospitalization)
  Sender: FDA-Public Use
  Company Number: ANTA0800077

PATIENT
  Age: 80 Year
  Sex: Male

DRUGS (1)
  1. ANTARA (MICRONIZED) [Suspect]
     Indication: HYPERCHOLESTEROLAEMIA
     Dosage: 130 MG, QD
     Dates: start: 20080401

REACTIONS (1)
  - MYALGIA [None]
